FAERS Safety Report 18297372 (Version 2)
Quarter: 2021Q1

REPORT INFORMATION
  Report Type: Spontaneous
  Country: US (occurrence: US)
  Receive Date: 20200923
  Receipt Date: 20210326
  Transmission Date: 20210419
  Serious: Yes (Other)
  Sender: FDA-Public Use
  Company Number: US-SA-2020SA256242

PATIENT
  Age: 8 Year
  Sex: Male

DRUGS (1)
  1. ZANTAC [Suspect]
     Active Substance: RANITIDINE HYDROCHLORIDE
     Dosage: UNK, QD
     Dates: start: 200601, end: 201401

REACTIONS (2)
  - Hepatic cancer [Unknown]
  - Deafness [Unknown]

NARRATIVE: CASE EVENT DATE: 20081114
